FAERS Safety Report 6467148-1 (Version None)
Quarter: 2009Q4

REPORT INFORMATION
  Report Type: 
  Country: None (occurrence: None)
  Receive Date: 20091202
  Receipt Date: 20091126
  Transmission Date: 20100525
  Serious: Yes (Death)
  Sender: FDA-Public Use
  Company Number: DE-BRISTOL-MYERS SQUIBB COMPANY-14873657

PATIENT

DRUGS (2)
  1. ARIPIPRAZOLE [Suspect]
  2. CLOZAPINE [Suspect]

REACTIONS (1)
  - SUDDEN DEATH [None]
